FAERS Safety Report 8764730 (Version 2)
Quarter: 2013Q4

REPORT INFORMATION
  Report Type: Spontaneous
  Country: US (occurrence: US)
  Receive Date: 20120831
  Receipt Date: 20131101
  Transmission Date: 20140711
  Serious: No
  Sender: FDA-Public Use
  Company Number: US-009507513-1208USA003010

PATIENT
  Sex: Male

DRUGS (5)
  1. VICTRELIS [Suspect]
     Indication: HEPATITIS C
     Dosage: 200 MG, TID
     Route: 048
  2. PEGINTRON [Suspect]
     Indication: HEPATITIS C
  3. RIBASPHERE [Suspect]
     Indication: HEPATITIS C
  4. METFORMIN [Concomitant]
  5. LISINOPRIL [Concomitant]

REACTIONS (3)
  - White blood cell count decreased [Unknown]
  - Nasopharyngitis [Unknown]
  - Underdose [Unknown]
